FAERS Safety Report 4380134-0 (Version None)
Quarter: 2004Q2

REPORT INFORMATION
  Report Type: 
  Country: None (occurrence: None)
  Receive Date: 20040616
  Receipt Date: 20040604
  Transmission Date: 20050107
  Serious: Yes (Death)
  Sender: FDA-Public Use
  Company Number: 8168

PATIENT
  Age: 83 Year
  Sex: Male

DRUGS (5)
  1. AMIODARONE [Suspect]
     Dosage: 400 MG DAILY
  2. CAPTOPRIL [Concomitant]
  3. FUROSEMIDE [Concomitant]
  4. ASPIRIN [Concomitant]
  5. ACENOCOUMAROL [Concomitant]

REACTIONS (11)
  - ASCITES [None]
  - BILIARY CIRRHOSIS [None]
  - BLOOD CREATININE INCREASED [None]
  - BLOOD UREA INCREASED [None]
  - COAGULOPATHY [None]
  - HAEMATEMESIS [None]
  - HEPATIC FIBROSIS [None]
  - HEPATIC STEATOSIS [None]
  - HEPATOJUGULAR REFLUX [None]
  - HEPATOMEGALY [None]
  - OEDEMA PERIPHERAL [None]
